FAERS Safety Report 8147761 (Version 3)
Quarter: 2015Q4

REPORT INFORMATION
  Report Type: Spontaneous
  Country: US (occurrence: US)
  Receive Date: 20110922
  Receipt Date: 20151230
  Transmission Date: 20160305
  Serious: Yes (Other)
  Sender: FDA-Public Use
  Company Number: US-ASTRAZENECA-2011SE06133

PATIENT
  Age: 59 Year
  Sex: Female
  Weight: 92.2 kg

DRUGS (36)
  1. SEROQUEL [Suspect]
     Active Substance: QUETIAPINE FUMARATE
     Indication: TREMOR
     Route: 048
     Dates: start: 201408
  2. SEROQUEL [Suspect]
     Active Substance: QUETIAPINE FUMARATE
     Indication: BIPOLAR DISORDER
     Route: 048
     Dates: start: 201408
  3. SYMBICORT [Suspect]
     Active Substance: BUDESONIDE\FORMOTEROL FUMARATE DIHYDRATE
     Indication: ASTHMA
     Dosage: 160/4.5 TWO TIMES A DAY
     Route: 055
     Dates: end: 201503
  4. NIACIN. [Concomitant]
     Active Substance: NIACIN
     Indication: BLOOD CHOLESTEROL ABNORMAL
     Route: 065
     Dates: start: 2013, end: 201501
  5. SEROQUEL [Suspect]
     Active Substance: QUETIAPINE FUMARATE
     Indication: BIPOLAR DISORDER
     Dosage: 300 MG IN THE MORNING AND 600 MG AT NIGHT
     Route: 048
     Dates: start: 2007, end: 2009
  6. SYNTHROID [Concomitant]
     Active Substance: LEVOTHYROXINE SODIUM
     Indication: HYPOTHYROIDISM
     Route: 048
     Dates: start: 1995
  7. SYNTHROID [Concomitant]
     Active Substance: LEVOTHYROXINE SODIUM
     Indication: HYPOTHYROIDISM
     Route: 048
  8. SEROQUEL [Suspect]
     Active Substance: QUETIAPINE FUMARATE
     Indication: BIPOLAR DISORDER
     Dosage: IN THE MORNING FIVE DAYS A WEEK
     Route: 048
     Dates: start: 201010
  9. SEROQUEL [Suspect]
     Active Substance: QUETIAPINE FUMARATE
     Indication: BIPOLAR DISORDER
     Dosage: QUETIAPINE FUMARATE 300 MG IN THE AM AS NEEDED AND 600 MG AT NIGHT
     Route: 048
     Dates: start: 2012, end: 2013
  10. SEROQUEL [Suspect]
     Active Substance: QUETIAPINE FUMARATE
     Indication: TREMOR
     Route: 048
  11. SEROQUEL [Suspect]
     Active Substance: QUETIAPINE FUMARATE
     Indication: BIPOLAR DISORDER
     Route: 048
  12. SYMBICORT [Suspect]
     Active Substance: BUDESONIDE\FORMOTEROL FUMARATE DIHYDRATE
     Indication: ASTHMA
     Dosage: 160/4.5 ONCE DAILY
     Route: 055
     Dates: start: 201501, end: 201501
  13. SYMBICORT [Suspect]
     Active Substance: BUDESONIDE\FORMOTEROL FUMARATE DIHYDRATE
     Indication: ASTHMA
     Dosage: 160-4.5 AS NEEDED INSTEAD OF EVERY DAY
     Route: 055
  14. TOBRADEX [Concomitant]
     Active Substance: DEXAMETHASONE\TOBRAMYCIN
     Indication: EYE INFECTION
     Dosage: AS REQUIRED
     Route: 047
     Dates: start: 2007
  15. SYMBICORT [Suspect]
     Active Substance: BUDESONIDE\FORMOTEROL FUMARATE DIHYDRATE
     Indication: ASTHMA
     Dosage: 160/4.5 TWO TIMES A DAY
     Route: 055
     Dates: start: 201501, end: 201501
  16. SYNTHROID [Concomitant]
     Active Substance: LEVOTHYROXINE SODIUM
     Indication: HYPOTHYROIDISM
     Route: 048
     Dates: start: 1995
  17. VITAMIN D [Concomitant]
     Active Substance: CHOLECALCIFEROL
     Indication: OSTEOPOROSIS
     Route: 048
  18. SEROQUEL [Suspect]
     Active Substance: QUETIAPINE FUMARATE
     Indication: TREMOR
     Route: 048
     Dates: start: 201501
  19. DEPAKOTE [Concomitant]
     Active Substance: DIVALPROEX SODIUM
     Indication: BIPOLAR DISORDER
     Route: 048
     Dates: start: 2008
  20. ALBUTEROL. [Concomitant]
     Active Substance: ALBUTEROL
     Indication: ASTHMA
     Route: 055
     Dates: end: 2003
  21. BONIVA [Concomitant]
     Active Substance: IBANDRONATE SODIUM
     Indication: OSTEOPOROSIS
     Route: 048
  22. SEROQUEL [Suspect]
     Active Substance: QUETIAPINE FUMARATE
     Indication: BIPOLAR DISORDER
     Dosage: 300 MG AS NEEDED IN THE MORNING AND 600 MG AT NIGHT
     Route: 048
     Dates: start: 2009
  23. SEROQUEL [Suspect]
     Active Substance: QUETIAPINE FUMARATE
     Indication: BIPOLAR DISORDER
     Route: 048
     Dates: start: 201501
  24. SYNTHROID [Concomitant]
     Active Substance: LEVOTHYROXINE SODIUM
     Indication: HYPOTHYROIDISM
     Route: 048
     Dates: start: 2014
  25. FLONASE [Concomitant]
     Active Substance: FLUTICASONE PROPIONATE
     Indication: HYPERSENSITIVITY
     Dosage: TWO SPRAYS IN EACH NOSTRIL AS NEEDED
     Route: 045
     Dates: start: 2003
  26. NIACIN. [Concomitant]
     Active Substance: NIACIN
     Indication: BLOOD CHOLESTEROL ABNORMAL
     Route: 065
     Dates: start: 201501
  27. PATADAY [Concomitant]
     Active Substance: OLOPATADINE HYDROCHLORIDE
     Indication: EYE ALLERGY
     Dosage: AS REQUIRED
     Route: 047
     Dates: start: 2010
  28. SEROQUEL [Suspect]
     Active Substance: QUETIAPINE FUMARATE
     Indication: TREMOR
     Dosage: 300 MG IN THE MORNING AND 600 MG AT NIGHT
     Route: 048
     Dates: start: 2007, end: 2009
  29. SEROQUEL [Suspect]
     Active Substance: QUETIAPINE FUMARATE
     Indication: TREMOR
     Dosage: QUETIAPINE FUMARATE 300 MG IN THE AM AS NEEDED AND 600 MG AT NIGHT
     Route: 048
     Dates: start: 2012, end: 2013
  30. SALINE ORAL OTC [Concomitant]
     Active Substance: SODIUM CHLORIDE
     Indication: EPISTAXIS
     Dosage: 2 TO 3 SPRAYS IN EACH NOSTRIL BEFORE TAKING THE FLONASE
     Route: 045
     Dates: start: 2003
  31. NIACIN. [Concomitant]
     Active Substance: NIACIN
     Indication: BLOOD CHOLESTEROL ABNORMAL
     Route: 065
     Dates: start: 2009, end: 2013
  32. SEROQUEL [Suspect]
     Active Substance: QUETIAPINE FUMARATE
     Indication: TREMOR
     Dosage: 300 MG AS NEEDED IN THE MORNING AND 600 MG AT NIGHT
     Route: 048
     Dates: start: 2009
  33. SEROQUEL [Suspect]
     Active Substance: QUETIAPINE FUMARATE
     Indication: TREMOR
     Dosage: IN THE MORNING FIVE DAYS A WEEK
     Route: 048
     Dates: start: 201010
  34. SYNTHROID [Concomitant]
     Active Substance: LEVOTHYROXINE SODIUM
     Indication: HYPOTHYROIDISM
     Route: 048
     Dates: end: 2014
  35. SYNTHROID [Concomitant]
     Active Substance: LEVOTHYROXINE SODIUM
     Indication: HYPOTHYROIDISM
     Route: 048
  36. ADVAIR HFA [Concomitant]
     Active Substance: FLUTICASONE PROPIONATE\SALMETEROL XINAFOATE
     Indication: ASTHMA
     Route: 055
     Dates: start: 2003, end: 2003

REACTIONS (37)
  - Stress [Unknown]
  - Blood cholesterol increased [Unknown]
  - Intentional product misuse [Unknown]
  - Nasopharyngitis [Recovered/Resolved]
  - Weight abnormal [Not Recovered/Not Resolved]
  - Depression [Unknown]
  - Disturbance in attention [Not Recovered/Not Resolved]
  - Amnesia [Not Recovered/Not Resolved]
  - Nausea [Unknown]
  - Epistaxis [Recovered/Resolved]
  - Oropharyngeal discomfort [Not Recovered/Not Resolved]
  - Dizziness [Unknown]
  - Tremor [Unknown]
  - Somnolence [Unknown]
  - Road traffic accident [Unknown]
  - Hypophagia [Recovered/Resolved]
  - Nasal dryness [Recovered/Resolved]
  - Eye pruritus [Recovered/Resolved]
  - Eye inflammation [Not Recovered/Not Resolved]
  - Emotional disorder [Unknown]
  - Dyspnoea [Unknown]
  - Hypersomnia [Unknown]
  - Seasonal allergy [Recovered/Resolved]
  - Vitamin D decreased [Unknown]
  - Feeling abnormal [Unknown]
  - Off label use [Unknown]
  - Foot fracture [Recovered/Resolved]
  - Head injury [Unknown]
  - Eye allergy [Not Recovered/Not Resolved]
  - Blood calcium decreased [Unknown]
  - Malaise [Unknown]
  - Impaired driving ability [Not Recovered/Not Resolved]
  - Fatigue [Unknown]
  - Adverse event [Not Recovered/Not Resolved]
  - Weight bearing difficulty [Recovered/Resolved]
  - Drug dose omission [Not Recovered/Not Resolved]
  - Product use issue [Not Recovered/Not Resolved]

NARRATIVE: CASE EVENT DATE: 2007
